FAERS Safety Report 8983302 (Version 2)
Quarter: 2013Q1

REPORT INFORMATION
  Report Type: Report from Study
  Country: JP (occurrence: JP)
  Receive Date: 20121221
  Receipt Date: 20130116
  Transmission Date: 20140127
  Serious: Yes (Hospitalization)
  Sender: FDA-Public Use
  Company Number: JP-B.I. PHARMACEUTICALS,INC./RIDGEFIELD-2012-BI-03436NB

PATIENT
  Age: 78 Year
  Sex: Male
  Weight: 51 kg

DRUGS (5)
  1. PRADAXA [Suspect]
     Indication: ATRIAL FIBRILLATION
     Dosage: 220 MG
     Route: 048
     Dates: start: 20121017, end: 20121210
  2. BAYASPIRIN [Suspect]
     Dosage: 100 MG
     Route: 048
     Dates: start: 20070830, end: 20121210
  3. COVERSYL [Suspect]
     Route: 065
     Dates: start: 2007
  4. LASIX [Suspect]
     Route: 065
     Dates: start: 2007
  5. LIPITOR [Suspect]
     Route: 065
     Dates: start: 2007

REACTIONS (2)
  - Cerebral thrombosis [Not Recovered/Not Resolved]
  - Drug ineffective [Unknown]
